FAERS Safety Report 24526636 (Version 1)
Quarter: 2024Q4

REPORT INFORMATION
  Report Type: Report from Study
  Country: DE (occurrence: DE)
  Receive Date: 20241021
  Receipt Date: 20241021
  Transmission Date: 20250114
  Serious: Yes (Hospitalization)
  Sender: CSL BEHRING
  Company Number: DE-BEH-2024181468

PATIENT
  Age: 67 Year
  Sex: Female
  Weight: 50 kg

DRUGS (18)
  1. PRIVIGEN [Suspect]
     Active Substance: HUMAN IMMUNOGLOBULIN G
     Indication: Secondary immunodeficiency
     Dosage: 20 G
     Route: 042
     Dates: start: 20240514
  2. PRIVIGEN [Suspect]
     Active Substance: HUMAN IMMUNOGLOBULIN G
     Dosage: 20 G, EVERY 4 WEEKS
     Route: 042
     Dates: start: 20240611, end: 20240709
  3. PRIVIGEN [Suspect]
     Active Substance: HUMAN IMMUNOGLOBULIN G
     Dosage: 20 G, EVERY 4 WEEKS
     Route: 042
     Dates: start: 20240709, end: 20240806
  4. PRIVIGEN [Suspect]
     Active Substance: HUMAN IMMUNOGLOBULIN G
     Dosage: 20 G, EVERY 4 WEEKS
     Route: 042
     Dates: start: 20240806, end: 20240903
  5. PRIVIGEN [Suspect]
     Active Substance: HUMAN IMMUNOGLOBULIN G
     Dosage: 20 GM
     Route: 042
     Dates: start: 20240903, end: 20241001
  6. AMOXICILLIN\CLAVULANATE POTASSIUM [Concomitant]
     Active Substance: AMOXICILLIN\CLAVULANATE POTASSIUM
     Indication: Prophylaxis
     Dosage: 875/125 MG, 2X1 FOR 10 DAYS
     Dates: start: 20240807
  7. AMOXICILLIN\CLAVULANATE POTASSIUM [Concomitant]
     Active Substance: AMOXICILLIN\CLAVULANATE POTASSIUM
     Dosage: 875/125 MG
     Dates: start: 202401
  8. AMOXICILLIN\CLAVULANATE POTASSIUM [Concomitant]
     Active Substance: AMOXICILLIN\CLAVULANATE POTASSIUM
     Dosage: 875/125 MG
     Dates: start: 202404, end: 202405
  9. BRUKINSA [Concomitant]
     Active Substance: ZANUBRUTINIB
     Dosage: 80 MG, BID
  10. TILIDINE [Concomitant]
     Active Substance: TILIDINE
     Dosage: 150/12 MG, 2X1
  11. BORNAPRINE HYDROCHLORIDE [Concomitant]
     Active Substance: BORNAPRINE HYDROCHLORIDE
     Dosage: 4 MG
  12. DIENOGEST\ESTRADIOL VALERATE [Concomitant]
     Active Substance: DIENOGEST\ESTRADIOL VALERATE
     Dosage: 1 MG/2 MG, 1X1
  13. EZETIMIBE\SIMVASTATIN [Concomitant]
     Active Substance: EZETIMIBE\SIMVASTATIN
     Dosage: 10 MG/40 MG, 1X1
  14. ASPIRIN [Concomitant]
     Active Substance: ASPIRIN
     Dosage: 1X1
  15. TOPIRAMATE [Concomitant]
     Active Substance: TOPIRAMATE
     Dosage: 50 MG, 2X1
  16. CYMBALTA [Concomitant]
     Active Substance: DULOXETINE HYDROCHLORIDE
     Dosage: 60 MG, 1X1
  17. TENOFOVIR DISOPROXIL AL [Concomitant]
     Dosage: 240 MG, 1X1
  18. AZITHROMYCIN [Concomitant]
     Active Substance: AZITHROMYCIN
     Dosage: 500 MG
     Dates: start: 202401

REACTIONS (4)
  - Cerebral amyloid angiopathy [Recovered/Resolved]
  - Pyrexia [Recovered/Resolved]
  - Chills [Recovered/Resolved]
  - Headache [Recovered/Resolved]

NARRATIVE: CASE EVENT DATE: 20240718
